FAERS Safety Report 9663449 (Version 2)
Quarter: 2013Q4

REPORT INFORMATION
  Report Type: Report from Study
  Country: US (occurrence: US)
  Receive Date: 20131101
  Receipt Date: 20131101
  Transmission Date: 20140711
  Serious: Yes (Hospitalization)
  Sender: FDA-Public Use
  Company Number: US-ROCHE-1277554

PATIENT
  Age: 69 Year
  Sex: Male

DRUGS (5)
  1. PEGASYS [Suspect]
     Indication: HEPATITIS C
     Dosage: WEEKLY
     Route: 058
     Dates: start: 20130308, end: 20130531
  2. PEGASYS [Suspect]
     Route: 058
     Dates: start: 20130531, end: 20130628
  3. RIBAVIRIN [Suspect]
     Indication: HEPATITIS C
     Route: 065
     Dates: start: 20130531, end: 20130628
  4. RIBAVIRIN [Suspect]
     Route: 065
     Dates: start: 20130308, end: 20130531
  5. VICTRELIS [Suspect]
     Indication: HEPATITIS C
     Route: 065
     Dates: start: 20130402, end: 20130613

REACTIONS (4)
  - Perirectal abscess [Not Recovered/Not Resolved]
  - Blood urine present [Unknown]
  - Haematochezia [Unknown]
  - Anaemia [Unknown]
